FAERS Safety Report 5289177-6 (Version None)
Quarter: 2007Q1

REPORT INFORMATION
  Report Type: 
  Country: None (occurrence: None)
  Receive Date: 20070119
  Receipt Date: 20060116
  Transmission Date: 20070707
  Serious: Yes (Hospitalization)
  Sender: FDA-Public Use
  Company Number: BDI-007870

PATIENT
  Age: 15 Year
  Sex: Female

DRUGS (1)
  1. PROHANCE [Suspect]
     Indication: DIAGNOSTIC PROCEDURE
     Dosage: IV
     Route: 042
     Dates: start: 20060113, end: 20060113

REACTIONS (1)
  - ANAPHYLACTIC REACTION [None]
